FAERS Safety Report 22175034 (Version 1)
Quarter: 2023Q2

REPORT INFORMATION
  Report Type: Spontaneous
  Country: US (occurrence: None)
  Receive Date: 20230405
  Receipt Date: 20230405
  Transmission Date: 20230721
  Serious: Yes (Other)
  Sender: FDA-Public Use
  Company Number: US-ROCHE-3322744

PATIENT
  Age: 75 Year
  Sex: Female

DRUGS (2)
  1. XOLAIR [Suspect]
     Active Substance: OMALIZUMAB
     Indication: Chronic spontaneous urticaria
     Route: 065
  2. DUPILUMAB [Concomitant]
     Active Substance: DUPILUMAB

REACTIONS (4)
  - Alopecia [Unknown]
  - Angioedema [Unknown]
  - Urticarial vasculitis [Unknown]
  - Chronic spontaneous urticaria [Unknown]
